FAERS Safety Report 9014309 (Version 1)
Quarter: 2013Q1

REPORT INFORMATION
  Report Type: Spontaneous
  Country: US (occurrence: US)
  Receive Date: 20130115
  Receipt Date: 20130115
  Transmission Date: 20140127
  Serious: No
  Sender: FDA-Public Use
  Company Number: US-PFIZER INC-2013013438

PATIENT
  Age: 65 Year
  Sex: Female
  Weight: 83.9 kg

DRUGS (3)
  1. PREMARIN [Suspect]
     Indication: HYSTERECTOMY
     Dosage: 1 DF, 1X/DAY
     Route: 048
     Dates: start: 1993
  2. PREMARIN [Suspect]
     Dosage: 0.3 MG, DAILY
     Route: 048
     Dates: end: 20121010
  3. CENTRUM SILVER [Concomitant]
     Dosage: 1 DF, 1X/DAY

REACTIONS (4)
  - Insomnia [Recovered/Resolved]
  - Irritability [Recovered/Resolved]
  - Hot flush [Recovered/Resolved]
  - Night sweats [Recovered/Resolved]
